FAERS Safety Report 10664490 (Version 1)
Quarter: 2014Q4

REPORT INFORMATION
  Report Type: Spontaneous
  Country: US (occurrence: US)
  Receive Date: 20141219
  Receipt Date: 20141219
  Transmission Date: 20150529
  Serious: Yes (Hospitalization, Other)
  Sender: FDA-Public Use
  Company Number: US-ASTRAZENECA-2014SE96510

PATIENT
  Age: 68 Year
  Sex: Male

DRUGS (2)
  1. TOPROL XL [Suspect]
     Active Substance: METOPROLOL SUCCINATE
     Indication: ATRIAL FIBRILLATION
     Route: 048
     Dates: start: 2012
  2. BABY ASPIRIN [Concomitant]
     Active Substance: ASPIRIN
     Indication: CEREBROVASCULAR ACCIDENT

REACTIONS (14)
  - Product use issue [Unknown]
  - Cardiac disorder [Unknown]
  - Tremor [Unknown]
  - Muscle disorder [Unknown]
  - Tremor [Unknown]
  - Road traffic accident [Unknown]
  - Hypertension [Unknown]
  - Pneumonia [Unknown]
  - Sepsis [Unknown]
  - Motor dysfunction [Unknown]
  - Heart rate decreased [Unknown]
  - Tremor [Unknown]
  - Nasopharyngitis [Unknown]
  - Head titubation [Unknown]

NARRATIVE: CASE EVENT DATE: 2012
